FAERS Safety Report 21283548 (Version 1)
Quarter: 2022Q3

REPORT INFORMATION
  Report Type: Spontaneous
  Country: US (occurrence: None)
  Receive Date: 20220901
  Receipt Date: 20220901
  Transmission Date: 20221027
  Serious: Yes (Hospitalization)
  Sender: FDA-Public Use
  Company Number: None

PATIENT
  Sex: Female

DRUGS (1)
  1. DEFEROXAMINE MESYLATE [Suspect]
     Active Substance: DEFEROXAMINE MESYLATE
     Indication: Sickle cell anaemia with crisis
     Dosage: 2000MG  5 DAYS PER WEEKS SUB-Q?
     Route: 058
     Dates: start: 20201119

REACTIONS (3)
  - Atrial fibrillation [None]
  - Thrombosis [None]
  - Therapy interrupted [None]
